FAERS Safety Report 6974213-9 (Version None)
Quarter: 2010Q3

REPORT INFORMATION
  Report Type: 
  Country: None (occurrence: None)
  Receive Date: 20100909
  Receipt Date: 20080214
  Transmission Date: 20110219
  Serious: No
  Sender: FDA-Public Use
  Company Number: US-WYE-H00557307

PATIENT
  Sex: Female
  Weight: 89.44 kg

DRUGS (4)
  1. PROTONIX [Suspect]
     Indication: GASTROOESOPHAGEAL REFLUX DISEASE
     Route: 048
     Dates: start: 20040101
  2. COUMADIN [Concomitant]
  3. HYZAAR [Concomitant]
  4. PROPRANOLOL [Concomitant]

REACTIONS (6)
  - DRUG INEFFECTIVE [None]
  - EATING DISORDER [None]
  - INCORRECT STORAGE OF DRUG [None]
  - NAUSEA [None]
  - PRODUCT QUALITY ISSUE [None]
  - WEIGHT DECREASED [None]
